FAERS Safety Report 5702490-0 (Version None)
Quarter: 2008Q2

REPORT INFORMATION
  Report Type: 
  Country: None (occurrence: None)
  Receive Date: 20080408
  Receipt Date: 20080402
  Transmission Date: 20081010
  Serious: Yes (Death, Other)
  Sender: FDA-Public Use
  Company Number: CLOF-1000130

PATIENT

DRUGS (20)
  1. CLOLAR [Suspect]
     Indication: ACUTE LYMPHOCYTIC LEUKAEMIA
     Dosage: 50 MG/M2, QD, INTRAVENOUS
     Route: 042
  2. CLOLAR [Suspect]
     Indication: LEUKAEMIA
     Dosage: 50 MG/M2, QD, INTRAVENOUS
     Route: 042
  3. CLOLAR [Suspect]
     Indication: NEUROBLASTOMA
     Dosage: 50 MG/M2, QD, INTRAVENOUS
     Route: 042
  4. CLOLAR [Suspect]
     Indication: RHABDOMYOSARCOMA
     Dosage: 50 MG/M2, QD, INTRAVENOUS
     Route: 042
  5. THIOTEPA (THIOTEPA) UNKNOW [Suspect]
     Indication: ACUTE LYMPHOCYTIC LEUKAEMIA
     Dosage: 10 MG/KG, ONCE
  6. THIOTEPA (THIOTEPA) UNKNOW [Suspect]
     Indication: LEUKAEMIA
     Dosage: 10 MG/KG, ONCE
  7. THIOTEPA (THIOTEPA) UNKNOW [Suspect]
     Indication: NEUROBLASTOMA
     Dosage: 10 MG/KG, ONCE
  8. THIOTEPA (THIOTEPA) UNKNOW [Suspect]
     Indication: RHABDOMYOSARCOMA
     Dosage: 10 MG/KG, ONCE
  9. MELPHALAN (MELPHALAN) UNKNOWN [Suspect]
     Indication: ACUTE LYMPHOCYTIC LEUKAEMIA
     Dosage: 70 MG/KG, QD
  10. MELPHALAN (MELPHALAN) UNKNOWN [Suspect]
     Indication: LEUKAEMIA
     Dosage: 70 MG/KG, QD
  11. MELPHALAN (MELPHALAN) UNKNOWN [Suspect]
     Indication: NEUROBLASTOMA
     Dosage: 70 MG/KG, QD
  12. MELPHALAN (MELPHALAN) UNKNOWN [Suspect]
     Indication: RHABDOMYOSARCOMA
     Dosage: 70 MG/KG, QD
  13. 03-OKT (MUROMONAB-CD3) UNKNOWN [Suspect]
     Indication: ACUTE LYMPHOCYTIC LEUKAEMIA
     Dosage: 0.1 MG/KG, QD
  14. 03-OKT (MUROMONAB-CD3) UNKNOWN [Suspect]
     Indication: LEUKAEMIA
     Dosage: 0.1 MG/KG, QD
  15. 03-OKT (MUROMONAB-CD3) UNKNOWN [Suspect]
     Indication: NEUROBLASTOMA
     Dosage: 0.1 MG/KG, QD
  16. 03-OKT (MUROMONAB-CD3) UNKNOWN [Suspect]
     Indication: RHABDOMYOSARCOMA
     Dosage: 0.1 MG/KG, QD
  17. ATG (ANTITHYMOCYTE IMMUNOGLOBULIN) UNKNOWN [Suspect]
     Indication: ACUTE LYMPHOCYTIC LEUKAEMIA
     Dosage: 10 MG/KG
  18. ATG (ANTITHYMOCYTE IMMUNOGLOBULIN) UNKNOWN [Suspect]
     Indication: LEUKAEMIA
     Dosage: 10 MG/KG
  19. ATG (ANTITHYMOCYTE IMMUNOGLOBULIN) UNKNOWN [Suspect]
     Indication: NEUROBLASTOMA
     Dosage: 10 MG/KG
  20. ATG (ANTITHYMOCYTE IMMUNOGLOBULIN) UNKNOWN [Suspect]
     Indication: RHABDOMYOSARCOMA
     Dosage: 10 MG/KG

REACTIONS (11)
  - ALANINE AMINOTRANSFERASE INCREASED [None]
  - ASPARTATE AMINOTRANSFERASE INCREASED [None]
  - BLOOD BILIRUBIN INCREASED [None]
  - CREATININE RENAL CLEARANCE [None]
  - DIARRHOEA [None]
  - DISEASE RECURRENCE [None]
  - MALIGNANT NEOPLASM PROGRESSION [None]
  - MUCOSAL INFLAMMATION [None]
  - PNEUMONITIS [None]
  - STOMATITIS [None]
  - TRANSPLANT REJECTION [None]
